FAERS Safety Report 8101678-1 (Version None)
Quarter: 2012Q1

REPORT INFORMATION
  Report Type: 
  Country: None (occurrence: None)
  Receive Date: 20120129
  Receipt Date: 20111017
  Transmission Date: 20120608
  Serious: No
  Sender: FDA-Public Use
  Company Number: US-ABBOTT-11P-163-0863388-00

PATIENT
  Sex: Female
  Weight: 71.732 kg

DRUGS (7)
  1. HYDROCHLOROQUIN [Concomitant]
     Indication: PRODUCT USED FOR UNKNOWN INDICATION
  2. HUMIRA [Suspect]
     Indication: COLITIS ULCERATIVE
     Dates: start: 20090101, end: 20101201
  3. ASACOL [Concomitant]
     Indication: COLITIS ULCERATIVE
  4. OMEPRAZOLE [Concomitant]
     Indication: PRODUCT USED FOR UNKNOWN INDICATION
  5. GABAPENTIN [Concomitant]
     Indication: HERPES ZOSTER
  6. ENTOCORT EC [Concomitant]
     Indication: COLITIS ULCERATIVE
  7. PREDNISONE TAB [Suspect]
     Indication: COLITIS ULCERATIVE

REACTIONS (17)
  - GRANULOMA [None]
  - CONTUSION [None]
  - SKIN ATROPHY [None]
  - DECREASED APPETITE [None]
  - WEIGHT DECREASED [None]
  - HEART RATE IRREGULAR [None]
  - ASTHENIA [None]
  - COLITIS ULCERATIVE [None]
  - ADVERSE DRUG REACTION [None]
  - MALAISE [None]
  - JOINT SWELLING [None]
  - GAIT DISTURBANCE [None]
  - DEPENDENCE [None]
  - FATIGUE [None]
  - PAIN OF SKIN [None]
  - DRUG INEFFECTIVE [None]
  - PAIN [None]
